FAERS Safety Report 17050735 (Version 1)
Quarter: 2019Q4

REPORT INFORMATION
  Report Type: Spontaneous
  Country: JP (occurrence: JP)
  Receive Date: 20191119
  Receipt Date: 20191119
  Transmission Date: 20200122
  Serious: Yes (Death, Life-Threatening, Other)
  Sender: FDA-Public Use
  Company Number: JP-SAKK-2019SA035758AA

PATIENT
  Age: 76 Year
  Sex: Male
  Weight: 69.7 kg

DRUGS (2)
  1. G LASTA [Concomitant]
     Active Substance: PEGFILGRASTIM
     Indication: PRODUCT USED FOR UNKNOWN INDICATION
     Dosage: UNK
     Route: 065
     Dates: start: 20180713
  2. JEVTANA [Suspect]
     Active Substance: CABAZITAXEL
     Indication: HORMONE-REFRACTORY PROSTATE CANCER
     Dosage: 34 MG, Q4W
     Route: 041
     Dates: start: 20180712, end: 20180712

REACTIONS (7)
  - Pyrexia [Not Recovered/Not Resolved]
  - Cardiac arrest [Fatal]
  - Blood pressure decreased [Fatal]
  - Febrile neutropenia [Not Recovered/Not Resolved]
  - Myocardial infarction [Fatal]
  - Dyspnoea [Fatal]
  - Diarrhoea [Unknown]

NARRATIVE: CASE EVENT DATE: 20180717
